FAERS Safety Report 8001120-5 (Version None)
Quarter: 2011Q4

REPORT INFORMATION
  Report Type: 
  Country: None (occurrence: None)
  Receive Date: 20111222
  Receipt Date: 20111216
  Transmission Date: 20120403
  Serious: No
  Sender: FDA-Public Use
  Company Number: US-BAYER-2011-122500

PATIENT

DRUGS (1)
  1. ULTRAVIST 150 [Suspect]

REACTIONS (1)
  - HYPERSENSITIVITY [None]
